FAERS Safety Report 6521656-3 (Version None)
Quarter: 2009Q4

REPORT INFORMATION
  Report Type: 
  Country: None (occurrence: None)
  Receive Date: 20091224
  Receipt Date: 20091217
  Transmission Date: 20100525
  Serious: No
  Sender: FDA-Public Use
  Company Number: 2009120043

PATIENT
  Sex: Female

DRUGS (1)
  1. ONSOLIS [Suspect]
     Route: 004

REACTIONS (2)
  - DRUG PRESCRIBING ERROR [None]
  - INTERCEPTED DRUG DISPENSING ERROR [None]
